FAERS Safety Report 16005508 (Version 1)
Quarter: 2019Q1

REPORT INFORMATION
  Report Type: Spontaneous
  Country: FR (occurrence: FR)
  Receive Date: 20190226
  Receipt Date: 20190226
  Transmission Date: 20190418
  Serious: Yes (Hospitalization)
  Sender: FDA-Public Use
  Company Number: FR-ASTRAZENECA-2019SE28492

PATIENT
  Age: 79 Year
  Sex: Female

DRUGS (8)
  1. DAFLON (DIOSMIN) [Suspect]
     Active Substance: DIOSMIN
     Route: 065
     Dates: start: 2012
  2. ACTONEL [Suspect]
     Active Substance: RISEDRONATE SODIUM
     Route: 065
     Dates: start: 2012
  3. SYMBICORT [Suspect]
     Active Substance: BUDESONIDE\FORMOTEROL FUMARATE DIHYDRATE
     Dosage: DOSE UNKNOWN UNKNOWN
     Route: 055
     Dates: start: 2012
  4. CHONDROSULF [Suspect]
     Active Substance: CHONDROITIN SULFATE (CHICKEN)
     Route: 048
     Dates: start: 2012
  5. DETENSIEL [Suspect]
     Active Substance: BISOPROLOL FUMARATE
     Route: 048
     Dates: start: 2012
  6. ALOMIDE [Suspect]
     Active Substance: LODOXAMIDE TROMETHAMINE
     Route: 065
     Dates: start: 2012
  7. CRESTOR [Suspect]
     Active Substance: ROSUVASTATIN CALCIUM
     Route: 048
     Dates: start: 2012
  8. SULFARLEM [Suspect]
     Active Substance: ANETHOLTRITHION
     Route: 048
     Dates: start: 2012

REACTIONS (1)
  - Eczema [Unknown]

NARRATIVE: CASE EVENT DATE: 201408
